FAERS Safety Report 20100927 (Version 2)
Quarter: 2021Q4

REPORT INFORMATION
  Report Type: Spontaneous
  Country: FR (occurrence: FR)
  Receive Date: 20211123
  Receipt Date: 20211202
  Transmission Date: 20220303
  Serious: Yes (Life-Threatening, Hospitalization, Other)
  Sender: FDA-Public Use
  Company Number: FR-MEDAC-2021001859

PATIENT
  Age: 66 Year
  Sex: Male

DRUGS (7)
  1. METHOTREXATE [Suspect]
     Active Substance: METHOTREXATE
     Indication: Psoriatic arthropathy
     Dosage: 22.5 MILLIGRAM, QW
  2. METFORMIN [Suspect]
     Active Substance: METFORMIN HYDROCHLORIDE
     Indication: Product used for unknown indication
     Dosage: UNK
     Dates: start: 2014
  3. HYDROCHLOROTHIAZIDE [Suspect]
     Active Substance: HYDROCHLOROTHIAZIDE
     Indication: Product used for unknown indication
     Dosage: UNK
     Dates: start: 2014
  4. FOLIC ACID [Concomitant]
     Active Substance: FOLIC ACID
     Dosage: TAKEN AT REGULAR INTERVALS (THREE DAYS AFTER METHOTREXATE INJECTION)
  5. ATORVASTATIN [Concomitant]
     Active Substance: ATORVASTATIN
     Dosage: UNK
     Dates: start: 2014
  6. LOSARTAN [Concomitant]
     Active Substance: LOSARTAN
     Dosage: UNK
     Dates: start: 2014
  7. ASPIRIN                            /00002701/ [Concomitant]
     Dosage: UNK
     Dates: start: 2014

REACTIONS (12)
  - Agranulocytosis [Recovered/Resolved]
  - Metabolic acidosis [Recovered/Resolved]
  - Renal tubular necrosis [Recovered/Resolved]
  - Staphylococcal bacteraemia [Recovered/Resolved]
  - Thrombophlebitis septic [Recovered/Resolved]
  - Renal failure [Recovered/Resolved]
  - Gastroenteritis [Recovered/Resolved]
  - Overdose [Recovered/Resolved]
  - Pancytopenia [Recovered/Resolved]
  - Mouth ulceration [Recovered/Resolved]
  - Diarrhoea [Recovered/Resolved]
  - Immunosuppressant drug level increased [Recovered/Resolved]

NARRATIVE: CASE EVENT DATE: 20200101
